FAERS Safety Report 8245493-7 (Version None)
Quarter: 2012Q1

REPORT INFORMATION
  Report Type: 
  Country: None (occurrence: None)
  Receive Date: 20120329
  Receipt Date: 20120322
  Transmission Date: 20120608
  Serious: Yes (Hospitalization)
  Sender: FDA-Public Use
  Company Number: US-ASTRAZENECA-2011SE31949

PATIENT
  Age: 50 Year
  Sex: Female
  Weight: 129.3 kg

DRUGS (2)
  1. SEROQUEL [Suspect]
     Indication: BIPOLAR DISORDER
     Route: 048
  2. SEROQUEL [Suspect]
     Route: 048

REACTIONS (7)
  - INSOMNIA [None]
  - LUNG CYST [None]
  - PNEUMONIA [None]
  - CANDIDIASIS [None]
  - DRUG DOSE OMISSION [None]
  - MALAISE [None]
  - LUNG ABSCESS [None]
